FAERS Safety Report 4323298-7 (Version None)
Quarter: 2004Q1

REPORT INFORMATION
  Report Type: 
  Country: None (occurrence: None)
  Receive Date: 20040323
  Receipt Date: 20031222
  Transmission Date: 20041129
  Serious: No
  Sender: FDA-Public Use
  Company Number: M03-341-195

PATIENT
  Age: 77 Year
  Sex: Male
  Weight: 76 kg

DRUGS (5)
  1. VELCADE [Suspect]
     Indication: MULTIPLE MYELOMA
     Dosage: : INTRAVENOUS (NOT OTHERWISE SPECIFIED)
     Route: 042
  2. CLEXA [Concomitant]
  3. DEXAMETHASONE [Concomitant]
  4. MEPRON [Concomitant]
  5. NORVASC [Concomitant]

REACTIONS (2)
  - FATIGUE [None]
  - NEUROPATHY PERIPHERAL [None]
